FAERS Safety Report 25878689 (Version 1)
Quarter: 2025Q4

REPORT INFORMATION
  Report Type: Spontaneous
  Country: CN (occurrence: CN)
  Receive Date: 20251003
  Receipt Date: 20251003
  Transmission Date: 20260117
  Serious: Yes (Other)
  Sender: BEIGENE
  Company Number: CN-BEIGENE-BGN-2025-016721

PATIENT
  Age: 64 Year
  Weight: 85 kg

DRUGS (1)
  1. BRUKINSA [Suspect]
     Active Substance: ZANUBRUTINIB
     Indication: B-cell lymphoma
     Dosage: 160 MILLIGRAM, BID

REACTIONS (1)
  - Myelosuppression [Recovering/Resolving]
